FAERS Safety Report 12205217 (Version 1)
Quarter: 2016Q1

REPORT INFORMATION
  Report Type: Spontaneous
  Country: IT (occurrence: IT)
  Receive Date: 20160323
  Receipt Date: 20160323
  Transmission Date: 20160526
  Serious: Yes (Other)
  Sender: FDA-Public Use
  Company Number: PHHY2016IT036391

PATIENT
  Age: 17 Year
  Sex: Female
  Weight: 38 kg

DRUGS (1)
  1. METHOTREXATE [Suspect]
     Active Substance: METHOTREXATE
     Indication: HETEROPLASIA
     Dosage: 15950 MG, ONCE/SINGLE
     Route: 042
     Dates: start: 20160302, end: 20160302

REACTIONS (4)
  - Bronchospasm [Recovered/Resolved]
  - Pruritus [Recovered/Resolved]
  - Urticaria [Recovered/Resolved]
  - Dysphagia [Recovered/Resolved]

NARRATIVE: CASE EVENT DATE: 20160302
